FAERS Safety Report 18490326 (Version 1)
Quarter: 2020Q4

REPORT INFORMATION
  Report Type: Spontaneous
  Country: US (occurrence: US)
  Receive Date: 20201111
  Receipt Date: 20201111
  Transmission Date: 20210114
  Serious: No
  Sender: FDA-Public Use
  Company Number: None

PATIENT
  Age: 75 Year
  Sex: Female
  Weight: 88.9 kg

DRUGS (6)
  1. OLUMIANT [Suspect]
     Active Substance: BARICITINIB
     Indication: RHEUMATOID ARTHRITIS
  2. OLUMIANT [Suspect]
     Active Substance: BARICITINIB
     Indication: RHEUMATOID ARTHRITIS
  3. OLUMIANT [Suspect]
     Active Substance: BARICITINIB
     Indication: RHEUMATOID FACTOR POSITIVE
  4. OLUMIANT [Suspect]
     Active Substance: BARICITINIB
     Indication: RHEUMATOID FACTOR POSITIVE
  5. OLUMIANT [Suspect]
     Active Substance: BARICITINIB
     Indication: RHEUMATOID ARTHRITIS
     Route: 048
     Dates: start: 202002
  6. OLUMIANT [Suspect]
     Active Substance: BARICITINIB
     Indication: RHEUMATOID ARTHRITIS

REACTIONS (4)
  - Atrial fibrillation [None]
  - Therapy interrupted [None]
  - Dizziness [None]
  - Rheumatoid arthritis [None]
